FAERS Safety Report 8305597-7 (Version None)
Quarter: 2012Q2

REPORT INFORMATION
  Report Type: 
  Country: None (occurrence: None)
  Receive Date: 20120423
  Receipt Date: 20120410
  Transmission Date: 20120825
  Serious: Yes (Other)
  Sender: FDA-Public Use
  Company Number: PHHY2012AT030789

PATIENT
  Sex: Female

DRUGS (1)
  1. GILENYA [Suspect]

REACTIONS (5)
  - INFLAMMATION [None]
  - ILEITIS [None]
  - ABDOMINAL INFECTION [None]
  - ACUTE ABDOMEN [None]
  - SUBILEUS [None]
